FAERS Safety Report 18913804 (Version 1)
Quarter: 2021Q1

REPORT INFORMATION
  Report Type: Other
  Country: NL (occurrence: NL)
  Receive Date: 20210219
  Receipt Date: 20210219
  Transmission Date: 20210420
  Serious: Yes (Hospitalization, Other)
  Sender: FDA-Public Use
  Company Number: NL-ROCHE-2769735

PATIENT

DRUGS (8)
  1. RIBAVIRIN. [Suspect]
     Active Substance: RIBAVIRIN
     Dosage: MAINTENANCE DOSE, 10?14 DAYS
     Route: 048
  2. PREDNISOLONE. [Concomitant]
     Active Substance: PREDNISOLONE
     Indication: INFECTION
     Dosage: INCREASED TO 0.5 MG/KG/DAY FOR 7?10 DAYS
  3. CYCLOSPORIN [Suspect]
     Active Substance: CYCLOSPORINE
     Indication: PROPHYLAXIS AGAINST TRANSPLANT REJECTION
     Route: 065
  4. RIBAVIRIN. [Suspect]
     Active Substance: RIBAVIRIN
     Dosage: LOADING DOSE
     Route: 048
  5. MYCOPHENOLATE MOFETIL. [Suspect]
     Active Substance: MYCOPHENOLATE MOFETIL
     Indication: PROPHYLAXIS AGAINST TRANSPLANT REJECTION
     Route: 065
  6. TACROLIMUS. [Suspect]
     Active Substance: TACROLIMUS
     Indication: PROPHYLAXIS AGAINST TRANSPLANT REJECTION
     Route: 065
  7. AZATHIOPRINE. [Suspect]
     Active Substance: AZATHIOPRINE
     Indication: PROPHYLAXIS AGAINST TRANSPLANT REJECTION
     Route: 065
  8. RIBAVIRIN. [Suspect]
     Active Substance: RIBAVIRIN
     Indication: INFECTION
     Dosage: 200 MG, B.I.D., IF {70 KG, 400 MG, B.I.D., IF }70 KG, BOTH 10?14 DAYS
     Route: 048

REACTIONS (13)
  - Metapneumovirus infection [Unknown]
  - Coronavirus infection [Unknown]
  - Haemoglobin decreased [Unknown]
  - Respiratory tract infection [Unknown]
  - Off label use [Unknown]
  - Respiratory syncytial virus infection [Unknown]
  - Bacterial infection [Unknown]
  - Rhinovirus infection [Unknown]
  - Parainfluenzae virus infection [Unknown]
  - Complications of transplanted lung [Unknown]
  - Viral infection [Unknown]
  - Anaemia [Unknown]
  - Intentional product use issue [Unknown]
